FAERS Safety Report 9222100 (Version 1)
Quarter: 2013Q2

REPORT INFORMATION
  Report Type: Spontaneous
  Country: GR (occurrence: GR)
  Receive Date: 20130410
  Receipt Date: 20130410
  Transmission Date: 20140414
  Serious: Yes (Other)
  Sender: FDA-Public Use
  Company Number: PHHY2013GR033002

PATIENT
  Sex: Male

DRUGS (1)
  1. GILENYA [Suspect]
     Indication: OFF LABEL USE
     Route: 048

REACTIONS (2)
  - Multiple sclerosis relapse [Unknown]
  - Abasia [Not Recovered/Not Resolved]
